FAERS Safety Report 5005727-9 (Version None)
Quarter: 2006Q2

REPORT INFORMATION
  Report Type: 
  Country: None (occurrence: None)
  Receive Date: 20060518
  Receipt Date: 20060511
  Transmission Date: 20061013
  Serious: Yes (Disabling)
  Sender: FDA-Public Use
  Company Number: 2006AP02220

PATIENT
  Age: 35 Year
  Sex: Female

DRUGS (1)
  1. NOLVADEX [Suspect]
     Indication: BREAST CANCER
     Route: 048

REACTIONS (4)
  - JOINT SWELLING [None]
  - OEDEMA PERIPHERAL [None]
  - PAIN [None]
  - WRIST DEFORMITY [None]
